FAERS Safety Report 13101651 (Version 1)
Quarter: 2017Q1

REPORT INFORMATION
  Report Type: Spontaneous
  Country: US (occurrence: US)
  Receive Date: 20170110
  Receipt Date: 20170110
  Transmission Date: 20170428
  Serious: No
  Sender: FDA-Public Use
  Company Number: US-ASTRAZENECA-2004UW15165

PATIENT
  Age: 714 Month
  Sex: Female
  Weight: 59 kg

DRUGS (15)
  1. BRILINTA [Suspect]
     Active Substance: TICAGRELOR
     Indication: DYSPNOEA
     Route: 048
     Dates: start: 201602, end: 201603
  2. PARLODEL [Concomitant]
     Active Substance: BROMOCRIPTINE MESYLATE
  3. ASPIRIN. [Concomitant]
     Active Substance: ASPIRIN
     Indication: CARDIAC DISORDER
     Route: 048
  4. VITAMIN D [Concomitant]
     Active Substance: CHOLECALCIFEROL
     Indication: VITAMIN D DECREASED
     Dosage: DAILY
     Route: 048
  5. VITAMIN B12 [Concomitant]
     Active Substance: CYANOCOBALAMIN
     Indication: VITAMIN B12 DECREASED
     Dosage: MONTH
  6. AUGMENTIN [Concomitant]
     Active Substance: AMOXICILLIN\CLAVULANATE POTASSIUM
     Indication: INFLUENZA LIKE ILLNESS
     Dates: start: 200312
  7. BRILINTA [Suspect]
     Active Substance: TICAGRELOR
     Indication: STENT PLACEMENT
     Route: 048
     Dates: start: 201602, end: 201603
  8. LIPITOR [Concomitant]
     Active Substance: ATORVASTATIN CALCIUM
  9. COQ [Concomitant]
     Indication: CARDIAC DISORDER
     Dosage: DAILY
     Route: 048
  10. PANTOPRAZOLE [Concomitant]
     Active Substance: PANTOPRAZOLE SODIUM
     Indication: GASTROOESOPHAGEAL REFLUX DISEASE
     Dosage: TWO TIMES A DAY
     Route: 048
  11. NEXIUM [Suspect]
     Active Substance: ESOMEPRAZOLE MAGNESIUM
     Indication: NAUSEA
     Dosage: ONCE
     Route: 048
     Dates: start: 200312, end: 200312
  12. NEXIUM [Suspect]
     Active Substance: ESOMEPRAZOLE MAGNESIUM
     Indication: DYSPEPSIA
     Dosage: ONCE
     Route: 048
     Dates: start: 200312, end: 200312
  13. METOPROZOL [Concomitant]
     Indication: CARDIAC DISORDER
     Dosage: DAILY
     Route: 048
  14. AMLODIPINE [Concomitant]
     Active Substance: AMLODIPINE BESYLATE
     Indication: CARDIAC DISORDER
     Dosage: DAILY
     Route: 048
  15. JINTELI [Concomitant]
     Active Substance: ETHINYL ESTRADIOL\NORETHINDRONE ACETATE
     Indication: HORMONE THERAPY
     Dosage: DAILY
     Route: 048

REACTIONS (7)
  - Weight decreased [Unknown]
  - Vitamin B12 decreased [Unknown]
  - Hypophagia [Unknown]
  - Nausea [Unknown]
  - Panic attack [Unknown]
  - Vitamin D decreased [Unknown]
  - Malaise [Unknown]

NARRATIVE: CASE EVENT DATE: 200312
